FAERS Safety Report 6144550-9 (Version None)
Quarter: 2009Q2

REPORT INFORMATION
  Report Type: 
  Country: None (occurrence: None)
  Receive Date: 20090406
  Receipt Date: 20090330
  Transmission Date: 20091009
  Serious: Yes (Hospitalization)
  Sender: FDA-Public Use
  Company Number: PHEH2009US03170

PATIENT
  Sex: Male
  Weight: 159.18 kg

DRUGS (4)
  1. RECLAST [Suspect]
     Indication: OSTEOPOROSIS
     Dosage: 5 MG, ANNUALLY
     Route: 042
     Dates: start: 20090312
  2. BENICAR [Concomitant]
  3. SYNTHROID [Concomitant]
  4. ANALGESICS [Concomitant]

REACTIONS (2)
  - HYPOCALCAEMIA [None]
  - INFLUENZA LIKE ILLNESS [None]
